FAERS Safety Report 5923040-X (Version None)
Quarter: 2008Q4

REPORT INFORMATION
  Report Type: 
  Country: None (occurrence: None)
  Receive Date: 20081018
  Receipt Date: 20081007
  Transmission Date: 20090506
  Serious: Yes (Disabling, Other)
  Sender: FDA-Public Use
  Company Number: AU-PFIZER INC-2008081825

PATIENT
  Sex: Female

DRUGS (5)
  1. CHAMPIX [Suspect]
     Indication: SMOKING CESSATION THERAPY
     Route: 048
  2. PROZAC [Concomitant]
     Indication: ANXIETY
     Route: 048
  3. PROZAC [Concomitant]
     Indication: DEPRESSION
  4. LANSOPRAZOLE [Concomitant]
  5. NORMISON [Concomitant]
     Indication: INSOMNIA
     Route: 048

REACTIONS (10)
  - ACTIVITIES OF DAILY LIVING IMPAIRED [None]
  - ASTHENIA [None]
  - DIZZINESS [None]
  - HEAD DISCOMFORT [None]
  - HOT FLUSH [None]
  - LABYRINTHITIS [None]
  - NAUSEA [None]
  - OCULAR HYPERAEMIA [None]
  - TREMOR [None]
  - VERTIGO [None]
